FAERS Safety Report 10977278 (Version 2)
Quarter: 2015Q2

REPORT INFORMATION
  Report Type: Spontaneous
  Country: US (occurrence: None)
  Receive Date: 20150331
  Receipt Date: 20150619
  Transmission Date: 20150821
  Serious: Yes (Other)
  Sender: FDA-Public Use
  Company Number: 2015-10941

PATIENT
  Age: 76 Year
  Sex: Female
  Weight: 60.3 kg

DRUGS (5)
  1. LISINOPRIL. [Concomitant]
     Active Substance: LISINOPRIL
  2. METOPROLOL [Concomitant]
     Active Substance: METOPROLOL
  3. ASPIRIN (ACETYLSALICYLIC ACID) [Concomitant]
     Active Substance: ASPIRIN
  4. EYLEA [Suspect]
     Active Substance: AFLIBERCEPT
     Indication: NEOVASCULAR AGE-RELATED MACULAR DEGENERATION
     Route: 031
     Dates: start: 20150311
  5. PRESERVISION AREDS (ASCORBIC ACID, BETACAROTENE, CUPRIC OXIDE, TOCOPHERYL ACETATE, ZINC OXIDE) [Concomitant]

REACTIONS (7)
  - Visual impairment [None]
  - Eye pain [None]
  - Eye swelling [None]
  - Cyanopsia [None]
  - Macular hole [None]
  - Eye discharge [None]
  - Visual acuity reduced [None]

NARRATIVE: CASE EVENT DATE: 20150311
